FAERS Safety Report 4717819-X (Version None)
Quarter: 2005Q3

REPORT INFORMATION
  Report Type: 
  Country: None (occurrence: None)
  Receive Date: 20050715
  Receipt Date: 20040903
  Transmission Date: 20060218
  Serious: Yes (Life-Threatening, Hospitalization)
  Sender: FDA-Public Use
  Company Number: 2004-00466

PATIENT
  Age: 57 Year
  Sex: Male
  Weight: 113 kg

DRUGS (4)
  1. INTEGRILIN [Suspect]
     Indication: CORONARY ANGIOPLASTY
     Dosage: SEE IMAGE
     Route: 040
     Dates: start: 20040829, end: 20040830
  2. INTEGRILIN [Suspect]
     Indication: CORONARY ANGIOPLASTY
     Dosage: SEE IMAGE
     Route: 040
     Dates: start: 20040829, end: 20040830
  3. LOVENOX [Suspect]
     Indication: CORONARY ANGIOPLASTY
     Dosage: 55.00 MG, INTRAVENOUS
     Route: 042
     Dates: start: 20040829, end: 20040829
  4. PLAVIX [Concomitant]

REACTIONS (1)
  - THROMBOCYTOPENIA [None]
